FAERS Safety Report 4550476-4 (Version None)
Quarter: 2004Q4

REPORT INFORMATION
  Report Type: 
  Country: None (occurrence: None)
  Receive Date: 20041227
  Receipt Date: 20041129
  Transmission Date: 20050328
  Serious: No
  Sender: FDA-Public Use
  Company Number: 04P-163-0281540-00

PATIENT
  Age: 68 Year
  Sex: Female

DRUGS (8)
  1. HUMIRA [Suspect]
     Indication: RHEUMATOID ARTHRITIS
     Dosage: 40 MG, 1 IN 15 D, SUBCUTANEOUS
     Route: 058
     Dates: start: 20041101
  2. MELOXICAM [Concomitant]
  3. NAPROXEN SODIUM [Concomitant]
  4. METHOTREXATE [Concomitant]
  5. AMLODIPINE BESYLATE [Concomitant]
  6. DIAZIDE [Concomitant]
  7. ACTOS [Concomitant]
  8. GLUCOPHAGE [Concomitant]

REACTIONS (2)
  - FOOT FRACTURE [None]
  - NASOPHARYNGITIS [None]
